FAERS Safety Report 11585838 (Version 1)
Quarter: 2015Q4

REPORT INFORMATION
  Report Type: Spontaneous
  Country: SI (occurrence: SI)
  Receive Date: 20151001
  Receipt Date: 20151001
  Transmission Date: 20160304
  Serious: Yes (Hospitalization, Other)
  Sender: FDA-Public Use
  Company Number: SI-BAYER-2015-428250

PATIENT
  Age: 37 Year
  Sex: Male

DRUGS (4)
  1. HALOPERIDOL. [Concomitant]
     Active Substance: HALOPERIDOL
  2. AMISULPRIDE [Concomitant]
     Active Substance: AMISULPRIDE
  3. ASPIRN 500 [Suspect]
     Active Substance: ASPIRIN
     Indication: MYALGIA
     Dosage: 150 DF, ONCE
     Route: 048
  4. QUETIAPINE [Concomitant]
     Active Substance: QUETIAPINE

REACTIONS (19)
  - Tinnitus [None]
  - Hyperkalaemia [None]
  - Hypokalaemia [None]
  - Nausea [None]
  - Intentional overdose [None]
  - Vomiting [None]
  - Psychomotor hyperactivity [None]
  - Acute kidney injury [None]
  - Gastritis [None]
  - Blood creatine phosphokinase increased [None]
  - Rhabdomyolysis [None]
  - Suicide attempt [None]
  - Metabolic acidosis [None]
  - Hyperhidrosis [None]
  - Respiratory alkalosis [None]
  - Tachycardia [None]
  - Myalgia [None]
  - Tachypnoea [None]
  - Abdominal pain [None]
